FAERS Safety Report 8424896-1 (Version None)
Quarter: 2012Q2

REPORT INFORMATION
  Report Type: 
  Country: None (occurrence: None)
  Receive Date: 20120605
  Receipt Date: 20120605
  Transmission Date: 20120825
  Serious: Yes (Life-Threatening)
  Sender: FDA-Public Use
  Company Number: None

PATIENT
  Age: 50 Year
  Sex: Male
  Weight: 92.9874 kg

DRUGS (2)
  1. VENLAFAXINE HCL [Suspect]
     Indication: PANIC DISORDER
     Dosage: 75MG 2X DAY PO
     Route: 048
     Dates: start: 20100120, end: 20120604
  2. VENLAFAXINE HCL [Suspect]
     Indication: MAJOR DEPRESSION
     Dosage: 75MG 2X DAY PO
     Route: 048
     Dates: start: 20100120, end: 20120604

REACTIONS (1)
  - PALPITATIONS [None]
